FAERS Safety Report 18290057 (Version 1)
Quarter: 2020Q3

REPORT INFORMATION
  Report Type: Spontaneous
  Country: US (occurrence: US)
  Receive Date: 20200921
  Receipt Date: 20200921
  Transmission Date: 20201103
  Serious: No
  Sender: FDA-Public Use
  Company Number: US-APOTEX-2020AP011186

PATIENT
  Sex: Male

DRUGS (1)
  1. DILT?XR [Suspect]
     Active Substance: DILTIAZEM
     Indication: PRODUCT USED FOR UNKNOWN INDICATION
     Dosage: 1 DF, UNK
     Route: 065
     Dates: start: 20200517, end: 202005

REACTIONS (5)
  - Product colour issue [Unknown]
  - Wrong technique in product usage process [Unknown]
  - Product dispensing error [Unknown]
  - Product substitution issue [Unknown]
  - Dizziness [Recovered/Resolved]

NARRATIVE: CASE EVENT DATE: 202005
